FAERS Safety Report 11860120 (Version 1)
Quarter: 2015Q4

REPORT INFORMATION
  Report Type: Spontaneous
  Country: JP (occurrence: JP)
  Receive Date: 20151222
  Receipt Date: 20151222
  Transmission Date: 20160305
  Serious: Yes (Other)
  Sender: FDA-Public Use
  Company Number: JP-ASTELLAS-2015JP025261

PATIENT

DRUGS (2)
  1. GRACEPTOR [Suspect]
     Active Substance: TACROLIMUS
     Indication: BONE MARROW TRANSPLANT
     Dosage: UNK, UNK, UNKNOWN FREQ.
     Route: 048
  2. PROGRAF [Suspect]
     Active Substance: TACROLIMUS\TACROLIMUS ANHYDROUS
     Indication: BONE MARROW TRANSPLANT
     Dosage: UNK, UNK, UNKNOWN FREQ.
     Route: 065

REACTIONS (1)
  - Graft versus host disease [Unknown]
